FAERS Safety Report 9375432 (Version 3)
Quarter: 2013Q3

REPORT INFORMATION
  Report Type: Spontaneous
  Country: US (occurrence: US)
  Receive Date: 20130628
  Receipt Date: 20130904
  Transmission Date: 20140515
  Serious: Yes (Hospitalization, Other)
  Sender: FDA-Public Use
  Company Number: US-BAYER-2013-079310

PATIENT
  Age: 57 Year
  Sex: Female
  Weight: 92.97 kg

DRUGS (1)
  1. MAGNEVIST [Suspect]
     Indication: ARTHROGRAM
     Dosage: 2 ML, ONCE
     Route: 014

REACTIONS (2)
  - Post procedural infection [None]
  - Arthritis infective [None]
